FAERS Safety Report 10134209 (Version 1)
Quarter: 2014Q2

REPORT INFORMATION
  Report Type: Spontaneous
  Country: US (occurrence: US)
  Receive Date: 20140428
  Receipt Date: 20140428
  Transmission Date: 20141212
  Serious: No
  Sender: FDA-Public Use
  Company Number: US-SANOFI-AVENTIS-2013SA077775

PATIENT
  Age: 46 Year
  Sex: Male

DRUGS (1)
  1. ALLEGRA 24 HOUR [Suspect]
     Indication: OCULAR HYPERAEMIA
     Route: 048
     Dates: start: 20130729, end: 20130729

REACTIONS (2)
  - Headache [Not Recovered/Not Resolved]
  - Rhinorrhoea [Not Recovered/Not Resolved]
